FAERS Safety Report 4598295-7 (Version None)
Quarter: 2005Q1

REPORT INFORMATION
  Report Type: 
  Country: None (occurrence: None)
  Receive Date: 20050302
  Receipt Date: 20050302
  Transmission Date: 20050727
  Serious: No
  Sender: FDA-Public Use
  Company Number: None

PATIENT
  Age: 46 Year
  Sex: Male

DRUGS (1)
  1. PIROXICAM [Suspect]
     Indication: INFLAMMATION
     Dosage: 20 MG PO BID
     Route: 048

REACTIONS (2)
  - BLISTER [None]
  - RASH ERYTHEMATOUS [None]
